FAERS Safety Report 10954324 (Version 2)
Quarter: 2015Q2

REPORT INFORMATION
  Report Type: Report from Study
  Country: US (occurrence: US)
  Receive Date: 20150325
  Receipt Date: 20150427
  Transmission Date: 20150821
  Serious: Yes (Other)
  Sender: FDA-Public Use
  Company Number: US-RECKITT BENCKISER PHARMACEUTICAL, INC-RB-077353-2015

PATIENT
  Age: 29 Year
  Sex: Female

DRUGS (2)
  1. SUBOXONE [Suspect]
     Active Substance: BUPRENORPHINE HYDROCHLORIDE\NALOXONE HYDROCHLORIDE
     Indication: PRODUCT USED FOR UNKNOWN INDICATION
     Dosage: UNK, BID
     Route: 065
  2. NEURON                             /06411001/ [Concomitant]
     Indication: SEIZURE
     Dosage: 600 MG, TID
     Route: 065

REACTIONS (5)
  - Intentional product misuse [Not Recovered/Not Resolved]
  - Condition aggravated [Recovered/Resolved]
  - Substance abuse [Recovered/Resolved]
  - Drug ineffective [Recovered/Resolved]
  - Seizure [Recovered/Resolved]

NARRATIVE: CASE EVENT DATE: 2011
